FAERS Safety Report 6341530-5 (Version None)
Quarter: 2009Q3

REPORT INFORMATION
  Report Type: 
  Country: None (occurrence: None)
  Receive Date: 20090904
  Receipt Date: 20090901
  Transmission Date: 20100115
  Serious: Yes (Other)
  Sender: FDA-Public Use
  Company Number: US-MERCK-0908USA04692

PATIENT
  Age: 13 Year
  Sex: Female

DRUGS (7)
  1. SINGULAIR [Suspect]
     Indication: HYPERSENSITIVITY
     Route: 048
     Dates: start: 20090113, end: 20090504
  2. SINGULAIR [Suspect]
     Route: 048
     Dates: start: 20090504, end: 20090601
  3. SINGULAIR [Suspect]
     Indication: ASTHMA
     Route: 048
     Dates: start: 20090113, end: 20090504
  4. SINGULAIR [Suspect]
     Route: 048
     Dates: start: 20090504, end: 20090601
  5. FLONASE [Concomitant]
     Route: 065
  6. ZYRTEC [Concomitant]
     Route: 065
  7. PROAIR (ALBUTEROL SULFATE) [Concomitant]
     Route: 065

REACTIONS (3)
  - OVERDOSE [None]
  - SELF-INJURIOUS IDEATION [None]
  - VIOLENCE-RELATED SYMPTOM [None]
